FAERS Safety Report 20303719 (Version 1)
Quarter: 2022Q1

REPORT INFORMATION
  Report Type: Spontaneous
  Country: US (occurrence: None)
  Receive Date: 20220105
  Receipt Date: 20220105
  Transmission Date: 20220424
  Serious: Yes (Death)
  Sender: FDA-Public Use
  Company Number: None

PATIENT
  Sex: Female

DRUGS (1)
  1. ZARXIO [Suspect]
     Active Substance: FILGRASTIM-SNDZ
     Indication: Pancreatic carcinoma
     Dosage: OTHER STRENGTH : 300/0.5 UG/ML;?OTHER QUANTITY : 300/0.5 UG/ML;?OTHER FREQUENCY : DAILY FOR  3 DAYS
     Dates: start: 20210116, end: 20210426

REACTIONS (1)
  - Death [None]
